FAERS Safety Report 7374290-X (Version None)
Quarter: 2011Q1

REPORT INFORMATION
  Report Type: 
  Country: None (occurrence: None)
  Receive Date: 20110325
  Receipt Date: 20110228
  Transmission Date: 20110831
  Serious: No
  Sender: FDA-Public Use
  Company Number: US-B.I. PHARMACEUTICALS,INC./RIDGEFIELD-2011-BP-03318BP

PATIENT
  Sex: Male

DRUGS (4)
  1. PRADAXA [Suspect]
     Indication: ATRIAL FIBRILLATION
     Route: 048
     Dates: start: 20110103
  2. FINASTERIDE [Concomitant]
     Indication: PROSTATOMEGALY
  3. TINOLOL [Concomitant]
     Indication: GLAUCOMA
  4. LIPITOR [Concomitant]
     Indication: BLOOD CHOLESTEROL INCREASED

REACTIONS (7)
  - DYSPHAGIA [None]
  - DYSPNOEA [None]
  - POLLAKIURIA [None]
  - FATIGUE [None]
  - RHINORRHOEA [None]
  - UPPER LIMB FRACTURE [None]
  - RASH [None]
